FAERS Safety Report 26051423 (Version 1)
Quarter: 2025Q4

REPORT INFORMATION
  Report Type: Spontaneous
  Country: US (occurrence: US)
  Receive Date: 20251117
  Receipt Date: 20251117
  Transmission Date: 20260118
  Serious: Yes (Other)
  Sender: BAXTER
  Company Number: US-BAXTER-2025BAX017090

PATIENT
  Age: 62 Year
  Sex: Female
  Weight: 106.8 kg

DRUGS (3)
  1. DEXTROSE [Suspect]
     Active Substance: DEXTROSE MONOHYDRATE
     Dosage: UNK
     Route: 065
     Dates: start: 20250612
  2. ANHYDROUS DEXTROSE [Suspect]
     Active Substance: ANHYDROUS DEXTROSE
     Indication: Hypoglycaemia
     Dosage: UNK, D10 UP TITRATED TO 200 ML/HR
     Route: 065
     Dates: start: 20250611
  3. DEXTROSE [Suspect]
     Active Substance: DEXTROSE MONOHYDRATE
     Indication: Hypoglycaemia
     Dosage: FREQUENT DOSES OF D50, UPTITRATED TO 200  ML/HR , ADDITIONAL D50 AMPS WERE GIVEN
     Route: 065
     Dates: start: 20250611

REACTIONS (3)
  - Blood glucose decreased [Recovering/Resolving]
  - Device infusion issue [Unknown]
  - Device information output issue [Unknown]

NARRATIVE: CASE EVENT DATE: 20250612
